FAERS Safety Report 12705984 (Version 3)
Quarter: 2016Q4

REPORT INFORMATION
  Report Type: Spontaneous
  Country: FR (occurrence: FR)
  Receive Date: 20160901
  Receipt Date: 20161005
  Transmission Date: 20170207
  Serious: Yes (Death, Hospitalization, Other)
  Sender: FDA-Public Use
  Company Number: FR-ACCORD-043642

PATIENT
  Age: 54 Year
  Sex: Female
  Weight: 67 kg

DRUGS (4)
  1. METOCLOPRAMIDE. [Concomitant]
     Active Substance: METOCLOPRAMIDE
     Indication: NAUSEA
     Dosage: DAILY DOSE OF 10 MG BEFORE MEALS IF NAUSEA
     Route: 048
  2. METHYLPREDNISOLONE. [Concomitant]
     Active Substance: METHYLPREDNISOLONE
     Indication: PREMEDICATION
     Dosage: SLOW INTRAVENOUS INJECTION IN 20 ML OF SODIUM CHLORIDE AT 0.9 %
     Route: 042
  3. DOCETAXEL ACCORD [Suspect]
     Active Substance: DOCETAXEL
     Indication: BREAST CANCER STAGE III
     Dosage: DOSE: 100 MG/M2(4 CYCLES), ON 19-MAY-2016,3RD CYCLE OF MONO-THERAPY SEQUENTIAL (7 CYCLES IN TOTAL)
     Route: 042
     Dates: start: 20160407, end: 20160519
  4. PREDNISONE. [Concomitant]
     Active Substance: PREDNISONE
     Indication: PREMEDICATION
     Dosage: IN PREVIOUS EVENING, IN EVENING AND IN THE NEXT MORNING AFTER ADMINISTRATION OF DOCETAXEL
     Route: 048

REACTIONS (11)
  - Febrile bone marrow aplasia [Fatal]
  - Perforation [Fatal]
  - Gastrointestinal wall thickening [Fatal]
  - Cardiac arrest [Fatal]
  - Septic shock [Fatal]
  - Skin toxicity [Unknown]
  - Pneumoperitoneum [Fatal]
  - Enterocolitis bacterial [Fatal]
  - Hypovolaemic shock [Fatal]
  - Pleural effusion [Unknown]
  - Gastrointestinal necrosis [Unknown]

NARRATIVE: CASE EVENT DATE: 20160519
